FAERS Safety Report 15270364 (Version 3)
Quarter: 2019Q1

REPORT INFORMATION
  Report Type: Spontaneous
  Country: US (occurrence: US)
  Receive Date: 20180813
  Receipt Date: 20190221
  Transmission Date: 20190417
  Serious: Yes (Other)
  Sender: FDA-Public Use
  Company Number: US-PFIZER INC-2018323812

PATIENT
  Age: 83 Year
  Sex: Female
  Weight: 67.13 kg

DRUGS (4)
  1. TRAMADOL. [Concomitant]
     Active Substance: TRAMADOL
     Dosage: UNK (COUPLE MORE TIMES A DAY)
  2. IBRANCE [Suspect]
     Active Substance: PALBOCICLIB
     Indication: BREAST CANCER METASTATIC
     Dosage: 125 MG, UNK
  3. IBRANCE [Suspect]
     Active Substance: PALBOCICLIB
     Dosage: 150 MG, CYCLIC (ONCE A DAY BY MOUTH FOR 21 DAYS)
     Route: 048
     Dates: start: 2016
  4. TRAMADOL. [Concomitant]
     Active Substance: TRAMADOL
     Dosage: UNK UNK, 1X/DAY
     Dates: start: 2014

REACTIONS (9)
  - Cough [Unknown]
  - Osteoporosis [Unknown]
  - Faeces discoloured [Unknown]
  - Swelling [Unknown]
  - Rib fracture [Unknown]
  - Clavicle fracture [Unknown]
  - Fall [Unknown]
  - Limb injury [Unknown]
  - Weight decreased [Unknown]

NARRATIVE: CASE EVENT DATE: 201807
